FAERS Safety Report 10709536 (Version 1)
Quarter: 2015Q1

REPORT INFORMATION
  Report Type: Spontaneous
  Country: US (occurrence: US)
  Receive Date: 20150114
  Receipt Date: 20150114
  Transmission Date: 20150721
  Serious: Yes (Death)
  Sender: FDA-Public Use
  Company Number: US-ASTRAZENECA-2015SE01434

PATIENT
  Age: 41 Year
  Sex: Female

DRUGS (6)
  1. AMITRIPTYLINE [Suspect]
     Active Substance: AMITRIPTYLINE
     Route: 048
  2. GABAPENTIN. [Suspect]
     Active Substance: GABAPENTIN
     Route: 048
  3. QUETIAPINE [Suspect]
     Active Substance: QUETIAPINE
     Route: 048
  4. DULOXETINE [Suspect]
     Active Substance: DULOXETINE
     Route: 048
  5. BENZONATATE. [Suspect]
     Active Substance: BENZONATATE
     Route: 048
  6. TIZANIDINE (TIZANIDINE) [Suspect]
     Active Substance: TIZANIDINE
     Route: 048

REACTIONS (1)
  - Toxicity to various agents [Fatal]
